FAERS Safety Report 21375947 (Version 18)
Quarter: 2024Q2

REPORT INFORMATION
  Report Type: Report from Study
  Country: US (occurrence: US)
  Receive Date: 20220926
  Receipt Date: 20240509
  Transmission Date: 20240715
  Serious: Yes (Hospitalization, Other)
  Sender: FDA-Public Use
  Company Number: US-DECIPHERA PHARMACEUTICALS LLC-2022US000789

PATIENT
  Age: 64 Year
  Sex: Female

DRUGS (9)
  1. QINLOCK [Suspect]
     Active Substance: RIPRETINIB
     Indication: Malignant connective tissue neoplasm
     Dosage: 150 MILLIGRAM, QD
     Route: 048
     Dates: start: 20220722, end: 202210
  2. QINLOCK [Suspect]
     Active Substance: RIPRETINIB
     Indication: Gastrointestinal stromal tumour
     Dosage: 150 MILLIGRAM, QD
     Route: 048
     Dates: start: 2022, end: 20230108
  3. QINLOCK [Suspect]
     Active Substance: RIPRETINIB
     Dosage: 150 MILLIGRAM, QD
     Route: 048
     Dates: start: 202301
  4. QINLOCK [Suspect]
     Active Substance: RIPRETINIB
     Dosage: UNK
     Dates: end: 20230207
  5. QINLOCK [Suspect]
     Active Substance: RIPRETINIB
     Dosage: 150 MILLIGRAM, QD
     Route: 048
     Dates: start: 20230216
  6. QINLOCK [Suspect]
     Active Substance: RIPRETINIB
     Dosage: 150 MILLIGRAM, QD
     Route: 048
  7. QINLOCK [Suspect]
     Active Substance: RIPRETINIB
     Dosage: 150 MILLIGRAM, BID
  8. LISINOPRIL [Concomitant]
     Active Substance: LISINOPRIL
     Indication: Product used for unknown indication
     Dosage: 5 MILLIGRAM, QD
  9. METOPROLOL [Concomitant]
     Active Substance: METOPROLOL
     Indication: Product used for unknown indication
     Dosage: UNK

REACTIONS (25)
  - Surgery [Unknown]
  - Squamous cell carcinoma of skin [Unknown]
  - Retching [Unknown]
  - Dysphagia [Unknown]
  - COVID-19 [Recovered/Resolved]
  - Influenza [Recovering/Resolving]
  - Productive cough [Unknown]
  - Reflexes abnormal [Unknown]
  - Depressed mood [Unknown]
  - Illness [Unknown]
  - Pyrexia [Recovering/Resolving]
  - Rash [Not Recovered/Not Resolved]
  - Blood pressure increased [Unknown]
  - Abdominal pain upper [Unknown]
  - Cough [Not Recovered/Not Resolved]
  - Fatigue [Unknown]
  - Alopecia [Recovering/Resolving]
  - Muscle spasms [Unknown]
  - Vomiting [Recovering/Resolving]
  - Nausea [Recovering/Resolving]
  - Upper-airway cough syndrome [Not Recovered/Not Resolved]
  - Respiratory disorder [Unknown]
  - Product physical consistency issue [Unknown]
  - Product shape issue [Unknown]
  - Product solubility abnormal [Unknown]

NARRATIVE: CASE EVENT DATE: 20220722
